FAERS Safety Report 5110082-X (Version None)
Quarter: 2006Q3

REPORT INFORMATION
  Report Type: 
  Country: None (occurrence: None)
  Receive Date: 20060921
  Receipt Date: 20060531
  Transmission Date: 20061208
  Serious: Yes (Hospitalization, Other)
  Sender: FDA-Public Use
  Company Number: BE-AVENTIS-200615777GDDC

PATIENT
  Age: 76 Year
  Sex: Female

DRUGS (7)
  1. KETEK [Suspect]
     Indication: SINUSITIS
     Route: 048
  2. DAFALGAN [Concomitant]
     Indication: PAIN
     Route: 048
  3. EFFEXOR [Concomitant]
     Indication: DEPRESSION
     Route: 048
  4. PIROXICAM [Concomitant]
     Indication: OSTEOARTHRITIS
     Route: 048
  5. INDERAL RETARD [Concomitant]
     Indication: MIGRAINE
     Route: 048
  6. ALDACTONE [Concomitant]
     Indication: OEDEMA PERIPHERAL
     Route: 048
  7. LORAZEPAM [Concomitant]
     Indication: INSOMNIA
     Dosage: DOSE: UNK
     Route: 048

REACTIONS (1)
  - HEPATITIS [None]
